FAERS Safety Report 22291584 (Version 1)
Quarter: 2023Q2

REPORT INFORMATION
  Report Type: Spontaneous
  Country: AU (occurrence: AU)
  Receive Date: 20230507
  Receipt Date: 20230507
  Transmission Date: 20230722
  Serious: Yes (Other)
  Sender: FDA-Public Use
  Company Number: AU-JNJFOC-20230465964

PATIENT
  Age: 61 Year
  Sex: Female

DRUGS (5)
  1. SPRAVATO [Suspect]
     Active Substance: ESKETAMINE
     Indication: Major depression
  2. SPRAVATO [Suspect]
     Active Substance: ESKETAMINE
     Indication: Post-traumatic stress disorder
  3. LAMOTRIGINE [Concomitant]
     Active Substance: LAMOTRIGINE
  4. QUETIAPINE [Concomitant]
     Active Substance: QUETIAPINE
  5. LEXAPRO [Concomitant]
     Active Substance: ESCITALOPRAM OXALATE

REACTIONS (1)
  - Suicidal ideation [Unknown]
